FAERS Safety Report 7518600-9 (Version None)
Quarter: 2011Q2

REPORT INFORMATION
  Report Type: 
  Country: None (occurrence: None)
  Receive Date: 20110601
  Receipt Date: 20110601
  Transmission Date: 20111010
  Serious: No
  Sender: FDA-Public Use
  Company Number: None

PATIENT
  Age: 58 Year
  Sex: Female
  Weight: 77.1115 kg

DRUGS (1)
  1. LEVAQUIN [Suspect]
     Indication: SUBCUTANEOUS ABSCESS
     Dosage: 750 MG DAILY PO
     Route: 048
     Dates: start: 20110514, end: 20110530

REACTIONS (3)
  - ABSCESS [None]
  - MUSCLE SPASMS [None]
  - JOINT SWELLING [None]
